FAERS Safety Report 11689730 (Version 1)
Quarter: 2015Q4

REPORT INFORMATION
  Report Type: Spontaneous
  Country: US (occurrence: None)
  Receive Date: 20151030
  Receipt Date: 20151030
  Transmission Date: 20160304
  Serious: No
  Sender: FDA-Public Use
  Company Number: None

PATIENT
  Age: 70 Year
  Sex: Female
  Weight: 97.98 kg

DRUGS (20)
  1. CELECOXIB 200MG APOTEK CORP. [Suspect]
     Active Substance: CELECOXIB
     Indication: OSTEOARTHRITIS
     Route: 048
     Dates: start: 20151014, end: 20151029
  2. DILT-CD DILTIAZEM [Concomitant]
  3. FLONASE [Concomitant]
     Active Substance: FLUTICASONE PROPIONATE
  4. ANASTROZOLE. [Concomitant]
     Active Substance: ANASTROZOLE
  5. ASPIRIN. [Concomitant]
     Active Substance: ASPIRIN
  6. CENTRUM SILVER [Concomitant]
     Active Substance: MINERALS\VITAMINS
  7. CELECOXIB 200MG APOTEK CORP. [Suspect]
     Active Substance: CELECOXIB
     Indication: FIBROMYALGIA
     Route: 048
     Dates: start: 20151014, end: 20151029
  8. CYCLOBENZAPRINE [Concomitant]
     Active Substance: CYCLOBENZAPRINE
  9. MONTELUKAST [Concomitant]
     Active Substance: MONTELUKAST SODIUM
  10. ADVAIR HFA [Concomitant]
     Active Substance: FLUTICASONE PROPIONATE\SALMETEROL XINAFOATE
  11. CELECOXIB. [Concomitant]
     Active Substance: CELECOXIB
  12. LEXAPRO (GENERIC) [Concomitant]
  13. VITAMIN B12 [Concomitant]
     Active Substance: CYANOCOBALAMIN
  14. OMEPRAZOLE. [Concomitant]
     Active Substance: OMEPRAZOLE
  15. PROAIR HFA [Concomitant]
     Active Substance: ALBUTEROL SULFATE
  16. BI-PAP [Concomitant]
     Active Substance: DEVICE
  17. LORATADINE. [Concomitant]
     Active Substance: LORATADINE
  18. EPIPEN [Concomitant]
     Active Substance: EPINEPHRINE
  19. OSTEO BI-FLEX [Concomitant]
     Active Substance: CHONDROITIN SULFATE A\GLUCOSAMINE
  20. CALCIUM 500+D [Concomitant]
     Active Substance: CALCIUM\VITAMIN D

REACTIONS (5)
  - Myalgia [None]
  - Drug ineffective [None]
  - Product formulation issue [None]
  - Arthralgia [None]
  - Product substitution issue [None]

NARRATIVE: CASE EVENT DATE: 20151014
